FAERS Safety Report 9563689 (Version 1)
Quarter: 2013Q3

REPORT INFORMATION
  Report Type: Spontaneous
  Country: FR (occurrence: None)
  Receive Date: 20130916
  Receipt Date: 20130916
  Transmission Date: 20140515
  Serious: No
  Sender: FDA-Public Use
  Company Number: JPI-P-001598

PATIENT
  Age: 65 Year
  Sex: Male

DRUGS (2)
  1. XYREM [Suspect]
     Indication: CATAPLEXY
     Dosage: 2.25 GM 2 IN 1 D
     Route: 048
     Dates: start: 20070429, end: 20070522
  2. MODIODAL 100 MG [Suspect]

REACTIONS (13)
  - Fatigue [None]
  - Hyperhidrosis [None]
  - Nervousness [None]
  - Feeling hot [None]
  - Reading disorder [None]
  - Disturbance in attention [None]
  - Vertigo [None]
  - Dizziness [None]
  - Visual impairment [None]
  - Headache [None]
  - Arthralgia [None]
  - Prostatic adenoma [None]
  - Myalgia [None]
